FAERS Safety Report 12985054 (Version 1)
Quarter: 2016Q4

REPORT INFORMATION
  Report Type: Spontaneous
  Country: DK (occurrence: DK)
  Receive Date: 20161129
  Receipt Date: 20161129
  Transmission Date: 20170207
  Serious: Yes (Other)
  Sender: FDA-Public Use
  Company Number: DK-ASTRAZENECA-2016SF24266

PATIENT
  Age: 16951 Day
  Sex: Female
  Weight: 77 kg

DRUGS (2)
  1. ENALAPRIL-HYDROCHLORTHIAZID ^KRKA^ [Concomitant]
     Indication: HYPERTENSION
     Dates: start: 20151204, end: 20160301
  2. FORXIGA [Suspect]
     Active Substance: DAPAGLIFLOZIN
     Indication: TYPE 2 DIABETES MELLITUS
     Route: 048
     Dates: start: 20150119, end: 20161103

REACTIONS (1)
  - Hypokalaemia [Recovering/Resolving]

NARRATIVE: CASE EVENT DATE: 20160223
